FAERS Safety Report 6594022-2 (Version None)
Quarter: 2010Q1

REPORT INFORMATION
  Report Type: 
  Country: None (occurrence: None)
  Receive Date: 20100218
  Receipt Date: 20100218
  Transmission Date: 20100710
  Serious: No
  Sender: FDA-Public Use
  Company Number: None

PATIENT
  Age: 44 Year
  Sex: Female
  Weight: 89.9 kg

DRUGS (1)
  1. VENLAFAXINE [Suspect]
     Indication: ANXIETY DISORDER
     Dosage: 37.5 QID PO
     Route: 048
     Dates: start: 20090604, end: 20100128

REACTIONS (3)
  - ANXIETY DISORDER [None]
  - MIGRAINE [None]
  - PANIC ATTACK [None]
